FAERS Safety Report 4954081-7 (Version None)
Quarter: 2006Q1

REPORT INFORMATION
  Report Type: 
  Country: None (occurrence: None)
  Receive Date: 20060327
  Receipt Date: 20060321
  Transmission Date: 20060701
  Serious: Yes (Death)
  Sender: FDA-Public Use
  Company Number: US-GLAXOSMITHKLINE-A0598443A

PATIENT
  Age: 70 Year
  Sex: Female

DRUGS (12)
  1. REQUIP [Suspect]
     Indication: RESTLESS LEGS SYNDROME
     Route: 048
     Dates: start: 20051001
  2. EFFEXOR [Concomitant]
  3. RITALIN [Concomitant]
  4. NEURONTIN [Concomitant]
  5. SYNTHROID [Concomitant]
  6. PRILOSEC [Concomitant]
  7. ZETIA [Concomitant]
  8. PROCRIT [Concomitant]
  9. B12 [Concomitant]
     Route: 042
  10. FOLIC ACID [Concomitant]
  11. LABETALOL HCL [Concomitant]
  12. TRANSFUSION [Concomitant]

REACTIONS (2)
  - PRURITUS [None]
  - ROAD TRAFFIC ACCIDENT [None]
